FAERS Safety Report 18795061 (Version 1)
Quarter: 2021Q1

REPORT INFORMATION
  Report Type: Spontaneous
  Country: US (occurrence: US)
  Receive Date: 20210127
  Receipt Date: 20210127
  Transmission Date: 20210419
  Serious: No
  Sender: FDA-Public Use
  Company Number: None

PATIENT
  Age: 71 Year
  Sex: Female
  Weight: 63.45 kg

DRUGS (19)
  1. EVEROLIMUS. [Suspect]
     Active Substance: EVEROLIMUS
     Indication: BREAST CANCER FEMALE
     Route: 048
     Dates: start: 20210114, end: 20210127
  2. RESTASIS OP [Concomitant]
  3. LEVOTHYROXINE. [Concomitant]
     Active Substance: LEVOTHYROXINE
  4. DEPAKOTE [Concomitant]
     Active Substance: DIVALPROEX SODIUM
  5. METOPROLOL TARTRATE. [Concomitant]
     Active Substance: METOPROLOL TARTRATE
  6. TRAVATAN Z [Concomitant]
     Active Substance: TRAVOPROST
  7. PROAIR HFA [Concomitant]
     Active Substance: ALBUTEROL SULFATE
  8. NORCO [Concomitant]
     Active Substance: ACETAMINOPHEN\HYDROCODONE BITARTRATE
  9. ONDANSETRON [Concomitant]
     Active Substance: ONDANSETRON
  10. FLOVENT HFA [Concomitant]
     Active Substance: FLUTICASONE PROPIONATE
  11. PANTOPRAZOLE [Concomitant]
     Active Substance: PANTOPRAZOLE
  12. QUETIAPINE. [Concomitant]
     Active Substance: QUETIAPINE
  13. HYDROCODONE?APAP [Concomitant]
     Active Substance: ACETAMINOPHEN\HYDROCODONE
  14. LETROZOLE. [Concomitant]
     Active Substance: LETROZOLE
  15. VERZENIO [Concomitant]
     Active Substance: ABEMACICLIB
  16. LISINOPRIL. [Concomitant]
     Active Substance: LISINOPRIL
  17. MULTIVITAMIN [Concomitant]
     Active Substance: VITAMINS
  18. VITAMIN D3 [Concomitant]
     Active Substance: CHOLECALCIFEROL
  19. LOTEMAX [Concomitant]
     Active Substance: LOTEPREDNOL ETABONATE

REACTIONS (2)
  - Nausea [None]
  - Vomiting [None]

NARRATIVE: CASE EVENT DATE: 20210126
